FAERS Safety Report 7035726-7 (Version None)
Quarter: 2010Q4

REPORT INFORMATION
  Report Type: 
  Country: None (occurrence: None)
  Receive Date: 20101008
  Receipt Date: 20101007
  Transmission Date: 20110411
  Serious: Yes (Hospitalization)
  Sender: FDA-Public Use
  Company Number: US-BRISTOL-MYERS SQUIBB COMPANY-15323983

PATIENT
  Sex: Female

DRUGS (4)
  1. ABILIFY [Suspect]
  2. LAMICTAL [Interacting]
  3. TEGRETOL [Concomitant]
     Dosage: EXTENDED RELEASE
  4. ZYPREXA [Concomitant]
     Dosage: EXTENDED RELEASE

REACTIONS (2)
  - DRUG INTERACTION [None]
  - SUICIDAL IDEATION [None]
